FAERS Safety Report 6071613-9 (Version None)
Quarter: 2009Q1

REPORT INFORMATION
  Report Type: 
  Country: None (occurrence: None)
  Receive Date: 20090209
  Receipt Date: 20090209
  Transmission Date: 20090719
  Serious: Yes (Disabling)
  Sender: FDA-Public Use
  Company Number: None

PATIENT
  Sex: Female
  Weight: 65.7716 kg

DRUGS (1)
  1. ACTONEL [Suspect]
     Indication: OSTEOPOROSIS
     Dosage: 35 MG. ONCE-A-WEEK BY MOUTH
     Route: 048
     Dates: start: 20071001, end: 20080101

REACTIONS (8)
  - ABDOMINAL PAIN LOWER [None]
  - ABDOMINAL PAIN UPPER [None]
  - BACK PAIN [None]
  - CHEST PAIN [None]
  - DIVERTICULITIS [None]
  - DYSPHAGIA [None]
  - IRRITABLE BOWEL SYNDROME [None]
  - PHOTOPSIA [None]
